FAERS Safety Report 21048738 (Version 1)
Quarter: 2022Q3

REPORT INFORMATION
  Report Type: Spontaneous
  Country: FR (occurrence: FR)
  Receive Date: 20220706
  Receipt Date: 20220706
  Transmission Date: 20221026
  Serious: Yes (Hospitalization)
  Sender: FDA-Public Use
  Company Number: None

PATIENT
  Age: 35 Year
  Sex: Male
  Weight: 84 kg

DRUGS (10)
  1. NOXAFIL [Suspect]
     Active Substance: POSACONAZOLE
     Indication: Acute graft versus host disease
     Dosage: 200MG X 3/D
     Dates: start: 20211007
  2. RUXOLITINIB [Suspect]
     Active Substance: RUXOLITINIB
     Indication: Acute graft versus host disease
     Dosage: UNK
     Dates: start: 20211007
  3. VALACYCLOVIR HYDROCHLORIDE [Concomitant]
     Active Substance: VALACYCLOVIR HYDROCHLORIDE
     Indication: Acute graft versus host disease
     Dosage: 200MG X 3/D
  4. BARACLUDE [Concomitant]
     Active Substance: ENTECAVIR
     Indication: Acute graft versus host disease
     Dosage: 200MG X 3/D
  5. PENICILLIN V BENZATHINE [Concomitant]
     Active Substance: PENICILLIN V BENZATHINE
     Indication: Acute graft versus host disease
     Dosage: 200MG X 3/D
  6. REFRESH CELLUVISC [Concomitant]
     Active Substance: CARBOXYMETHYLCELLULOSE SODIUM
     Indication: Product used for unknown indication
     Dosage: UNK
  7. PREDNISONE [Concomitant]
     Active Substance: PREDNISONE
     Indication: Acute graft versus host disease
     Dosage: ON DEMAND
  8. ACETAMINOPHEN [Concomitant]
     Active Substance: ACETAMINOPHEN
     Indication: Pain
     Dosage: UNK
  9. BACTRIM [Concomitant]
     Active Substance: SULFAMETHOXAZOLE\TRIMETHOPRIM
     Indication: Acute graft versus host disease
     Dosage: 200MG X 3/D
  10. PREVYMIS [Concomitant]
     Active Substance: LETERMOVIR
     Indication: Acute graft versus host disease
     Dosage: 200MG X 3/D

REACTIONS (1)
  - Agranulocytosis [Not Recovered/Not Resolved]

NARRATIVE: CASE EVENT DATE: 20220607
